FAERS Safety Report 9353736 (Version 1)
Quarter: 2013Q2

REPORT INFORMATION
  Report Type: Report from Study
  Country: US (occurrence: US)
  Receive Date: 20130618
  Receipt Date: 20130618
  Transmission Date: 20140414
  Serious: Yes (Hospitalization)
  Sender: FDA-Public Use
  Company Number: US-PFIZER INC-2013179907

PATIENT
  Age: 69 Year
  Sex: Male
  Weight: 116 kg

DRUGS (5)
  1. BLINDED CELECOXIB [Suspect]
     Indication: ADENOCARCINOMA OF COLON
     Dosage: 400MG PO QD STARTING ON DAY 1 OF CYCLE 2 OF FOLFOX, CONTINUED TO 3 YEARS
     Route: 048
     Dates: start: 20130326, end: 20130607
  2. BLINDED PLACEBO [Suspect]
     Indication: ADENOCARCINOMA OF COLON
     Dosage: 400MG PO QD STARTING ON DAY 1 OF CYCLE 2 OF FOLFOX, CONTINUED TO 3 YEARS
     Route: 048
     Dates: start: 20130326, end: 20130607
  3. FLUOROURACIL [Suspect]
     Indication: ADENOCARCINOMA OF COLON
     Dosage: 400MG/M2 IVP ON DAY 1 FOLLOWED BY 5-FU: 2400 MG/M2 IV OVER 46-48 HOURS ON DAY 1
     Route: 042
     Dates: start: 20130326
  4. ELOXATIN [Suspect]
     Indication: ADENOCARCINOMA OF COLON
     Dosage: 85MG/M2 N OVER 2 HOURS ON DAY 1
     Route: 042
     Dates: start: 20130326
  5. LEUCOVORIN CALCIUM [Concomitant]
     Indication: ADENOCARCINOMA OF COLON
     Dosage: 400MG/M2 IV OVER 2 HOURS ON DAY 1
     Route: 042
     Dates: start: 20130326

REACTIONS (2)
  - Embolism [Not Recovered/Not Resolved]
  - Myocardial infarction [Recovered/Resolved]
